FAERS Safety Report 4365710-3 (Version None)
Quarter: 2004Q2

REPORT INFORMATION
  Report Type: 
  Country: None (occurrence: None)
  Receive Date: 20040521
  Receipt Date: 20031219
  Transmission Date: 20050107
  Serious: Yes (Hospitalization, Other)
  Sender: FDA-Public Use
  Company Number: M2003.6666

PATIENT
  Age: 60 Year
  Sex: Female

DRUGS (8)
  1. RIMACTANE [Suspect]
     Indication: PULMONARY TUBERCULOSIS
     Dosage: 450 MG/DAY
     Dates: start: 20020905, end: 20021003
  2. PYRAZINAMIDE [Suspect]
     Indication: PULMONARY TUBERCULOSIS
     Dosage: 1.2 G/DAY
     Dates: start: 20020905, end: 20021003
  3. ISONIAZID [Suspect]
     Indication: PULMONARY TUBERCULOSIS
     Dosage: SEE IMAGE
     Dates: start: 20020905, end: 20021003
  4. ISONIAZID [Suspect]
     Indication: PULMONARY TUBERCULOSIS
     Dosage: SEE IMAGE
     Dates: start: 20021017
  5. ALLOPURINOL [Suspect]
     Dosage: 300MG/DAY
     Dates: start: 20020905, end: 20021003
  6. ETHAMBUTOL HCL [Suspect]
     Indication: PULMONARY TUBERCULOSIS
     Dosage: SEE IMAGE
     Dates: start: 20020905, end: 20021003
  7. ETHAMBUTOL HCL [Suspect]
     Indication: PULMONARY TUBERCULOSIS
     Dosage: SEE IMAGE
     Dates: start: 20021017
  8. REBAMIPIDE [Concomitant]

REACTIONS (5)
  - AGRANULOCYTOSIS [None]
  - ANOREXIA [None]
  - EOSINOPHILIA [None]
  - HEPATITIS [None]
  - LEUKOPENIA [None]
